FAERS Safety Report 4325104-3 (Version None)
Quarter: 2004Q1

REPORT INFORMATION
  Report Type: 
  Country: None (occurrence: None)
  Receive Date: 20040323
  Receipt Date: 20040122
  Transmission Date: 20041129
  Serious: No
  Sender: FDA-Public Use
  Company Number: USA040157225

PATIENT
  Age: 48 Year
  Sex: Male
  Weight: 98 kg

DRUGS (2)
  1. CIALIS [Suspect]
     Dosage: 10 MG/AS NEEDED
     Dates: start: 20040101
  2. ZESTRIL [Concomitant]

REACTIONS (2)
  - DRUG INEFFECTIVE [None]
  - FLUSHING [None]
